FAERS Safety Report 19361985 (Version 1)
Quarter: 2021Q2

REPORT INFORMATION
  Report Type: Spontaneous
  Country: DE (occurrence: DE)
  Receive Date: 20210603
  Receipt Date: 20210603
  Transmission Date: 20210717
  Serious: Yes (Other)
  Sender: FDA-Public Use
  Company Number: DE-ABBVIE-21K-062-3931547-00

PATIENT
  Age: 45 Year
  Sex: Female

DRUGS (2)
  1. IMBRUVICA [Suspect]
     Active Substance: IBRUTINIB
     Indication: PRODUCT USED FOR UNKNOWN INDICATION
     Dosage: 1X1
     Route: 048
     Dates: start: 2016
  2. FERINJECT [Suspect]
     Active Substance: FERRIC CARBOXYMALTOSE
     Indication: BLOOD IRON INCREASED
     Dosage: 1X1?DOSAGE FORM? SOLUTION FOR INJECTION/INFUSION
     Route: 065
     Dates: start: 2019

REACTIONS (2)
  - Blood pressure increased [Recovered/Resolved]
  - Hydrocephalus [Unknown]
